FAERS Safety Report 5790166-3 (Version None)
Quarter: 2008Q2

REPORT INFORMATION
  Report Type: 
  Country: None (occurrence: None)
  Receive Date: 20080626
  Receipt Date: 20080325
  Transmission Date: 20081010
  Serious: No
  Sender: FDA-Public Use
  Company Number: A0702833A

PATIENT
  Age: 50 Year
  Sex: Female

DRUGS (3)
  1. ALLI [Suspect]
     Indication: DRUG USE FOR UNKNOWN INDICATION
     Route: 048
  2. VITAMIN D [Concomitant]
  3. VITAMINS [Concomitant]

REACTIONS (14)
  - BLOOD GLUCOSE INCREASED [None]
  - DEPRESSION [None]
  - DRUG INEFFECTIVE [None]
  - FOOD CRAVING [None]
  - GASTROINTESTINAL DISORDER [None]
  - HUNGER [None]
  - LIPIDS INCREASED [None]
  - MALABSORPTION [None]
  - MALAISE [None]
  - MYALGIA [None]
  - NAUSEA [None]
  - STEATORRHOEA [None]
  - VITAMIN D DECREASED [None]
  - WEIGHT INCREASED [None]
